FAERS Safety Report 21385830 (Version 5)
Quarter: 2023Q1

REPORT INFORMATION
  Report Type: Spontaneous
  Country: US (occurrence: US)
  Receive Date: 20220928
  Receipt Date: 20230202
  Transmission Date: 20230417
  Serious: No
  Sender: FDA-Public Use
  Company Number: US-Calliditas-2022CAL00340

PATIENT
  Age: 54 Year
  Sex: Male

DRUGS (3)
  1. TARPEYO [Suspect]
     Active Substance: BUDESONIDE
     Indication: IgA nephropathy
     Dosage: 16 MG (4 MG CAPSULES) ONCE DAILY
     Route: 048
     Dates: start: 20220413, end: 20230113
  2. LIPITOR [Concomitant]
     Active Substance: ATORVASTATIN CALCIUM
     Dates: start: 20220413
  3. ATENOLOL [Concomitant]
     Active Substance: ATENOLOL
     Dosage: INCREASED FROM 50 MG TO 100 MG
     Dates: start: 20220413

REACTIONS (16)
  - Joint swelling [Recovered/Resolved]
  - Contusion [Recovered/Resolved]
  - Joint swelling [Recovered/Resolved]
  - Arthralgia [Recovered/Resolved]
  - Myalgia [Recovered/Resolved]
  - Decreased activity [Unknown]
  - COVID-19 [Unknown]
  - Increased tendency to bruise [Recovered/Resolved]
  - Peripheral swelling [Recovered/Resolved]
  - Blood parathyroid hormone increased [Not Recovered/Not Resolved]
  - Swelling face [Recovering/Resolving]
  - Hypertension [Recovering/Resolving]
  - Musculoskeletal discomfort [Unknown]
  - Hypersensitivity [Recovering/Resolving]
  - Muscle spasms [Unknown]
  - Fat tissue increased [Unknown]

NARRATIVE: CASE EVENT DATE: 20220101
